FAERS Safety Report 5077784-5 (Version None)
Quarter: 2006Q3

REPORT INFORMATION
  Report Type: 
  Country: None (occurrence: None)
  Receive Date: 20060807
  Receipt Date: 20060801
  Transmission Date: 20061208
  Serious: No
  Sender: FDA-Public Use
  Company Number: TAP2006Q01070

PATIENT
  Age: 42 Year
  Sex: Female
  Weight: 130 kg

DRUGS (4)
  1. PREVACID [Suspect]
     Indication: BARRETT'S OESOPHAGUS
     Dosage: 30 MG, 1 IN 1 D, PER ORAL; 30  MG, 2 IN 1 D, PER ORAL
     Route: 048
     Dates: start: 20040101, end: 20060723
  2. PREVACID [Suspect]
     Indication: BARRETT'S OESOPHAGUS
     Dosage: 30 MG, 1 IN 1 D, PER ORAL; 30  MG, 2 IN 1 D, PER ORAL
     Route: 048
     Dates: start: 20060724
  3. ALBUTEROL [Concomitant]
  4. THYROID TAB [Concomitant]

REACTIONS (7)
  - CONFUSIONAL STATE [None]
  - HEADACHE [None]
  - HYPERTENSION [None]
  - MULTIPLE SCLEROSIS [None]
  - VITAMIN B12 DECREASED [None]
  - VITAMIN B6 DECREASED [None]
  - VITAMIN D DECREASED [None]
